FAERS Safety Report 20537410 (Version 7)
Quarter: 2022Q3

REPORT INFORMATION
  Report Type: Report from Study
  Country: FR (occurrence: FR)
  Receive Date: 20220302
  Receipt Date: 20220726
  Transmission Date: 20221026
  Serious: Yes (Other)
  Sender: FDA-Public Use
  Company Number: FR-VIIV HEALTHCARE LIMITED-FR2022EME035560

PATIENT

DRUGS (1)
  1. DOLUTEGRAVIR SODIUM\LAMIVUDINE [Suspect]
     Active Substance: DOLUTEGRAVIR SODIUM\LAMIVUDINE
     Indication: HIV infection
     Dosage: 1 DF, QD
     Route: 048
     Dates: start: 20210807, end: 20220614

REACTIONS (7)
  - Cholestasis [Unknown]
  - Hypertransaminasaemia [Recovering/Resolving]
  - Toxicity to various agents [Unknown]
  - Drug intolerance [Unknown]
  - Hepatic enzyme increased [Unknown]
  - Blood bilirubin increased [Unknown]
  - Hepatic enzyme abnormal [Unknown]

NARRATIVE: CASE EVENT DATE: 20210811
